FAERS Safety Report 13963862 (Version 1)
Quarter: 2017Q3

REPORT INFORMATION
  Report Type: Spontaneous
  Country: US (occurrence: None)
  Receive Date: 20170913
  Receipt Date: 20170913
  Transmission Date: 20171128
  Serious: No
  Sender: FDA-Public Use
  Company Number: None

PATIENT
  Age: 69 Year
  Sex: Female
  Weight: 47.63 kg

DRUGS (8)
  1. CIPROFLOXACIN 500MG TABS [Suspect]
     Active Substance: CIPROFLOXACIN
     Indication: ESCHERICHIA INFECTION
     Route: 048
     Dates: start: 20170803, end: 20170805
  2. SIMVASTATIN. [Concomitant]
     Active Substance: SIMVASTATIN
  3. COQ10 [Concomitant]
     Active Substance: UBIDECARENONE
  4. CIPROFLOXACIN 500MG TABS [Suspect]
     Active Substance: CIPROFLOXACIN
     Indication: GASTROINTESTINAL DISORDER
     Route: 048
     Dates: start: 20170803, end: 20170805
  5. CALCIUM [Concomitant]
     Active Substance: CALCIUM
  6. FISH OIL [Concomitant]
     Active Substance: FISH OIL
  7. BABY ASPIRIN [Concomitant]
     Active Substance: ASPIRIN
  8. COLON HEALTH [Concomitant]

REACTIONS (3)
  - Pain in extremity [None]
  - Peripheral coldness [None]
  - Burning feet syndrome [None]

NARRATIVE: CASE EVENT DATE: 20170810
